FAERS Safety Report 11914195 (Version 1)
Quarter: 2016Q1

REPORT INFORMATION
  Report Type: Spontaneous
  Country: US (occurrence: US)
  Receive Date: 20160113
  Receipt Date: 20160113
  Transmission Date: 20160526
  Serious: Yes (Other)
  Sender: FDA-Public Use
  Company Number: US-BAYER-2016-003544

PATIENT
  Age: 31 Year
  Sex: Female

DRUGS (9)
  1. LABETALOL [Concomitant]
     Active Substance: LABETALOL\LABETALOL HYDROCHLORIDE
     Indication: BLOOD PRESSURE MANAGEMENT
  2. ESMOLOL [Concomitant]
     Active Substance: ESMOLOL HYDROCHLORIDE
     Indication: BLOOD PRESSURE MANAGEMENT
  3. SUCCINYLCHOLINE CHLORIDE. [Concomitant]
     Active Substance: SUCCINYLCHOLINE CHLORIDE
  4. LIDOCAIN [Concomitant]
     Active Substance: LIDOCAINE
  5. CHLORTHALIDONE. [Concomitant]
     Active Substance: CHLORTHALIDONE
  6. PROPOFOL. [Concomitant]
     Active Substance: PROPOFOL
  7. HYDROMORPHONE [Concomitant]
     Active Substance: HYDROMORPHONE
  8. NICARDIPINE [Concomitant]
     Active Substance: NICARDIPINE
     Indication: BLOOD PRESSURE MANAGEMENT
  9. NIFEDIPINE. [Suspect]
     Active Substance: NIFEDIPINE
     Indication: HYPERTENSION
     Dosage: AT 29 WEEKS

REACTIONS (4)
  - Nonreassuring foetal heart rate pattern [None]
  - Premature delivery [None]
  - Hypertension [None]
  - Maternal exposure during pregnancy [None]
